FAERS Safety Report 25680084 (Version 2)
Quarter: 2025Q3

REPORT INFORMATION
  Report Type: Spontaneous
  Country: US (occurrence: US)
  Receive Date: 20250814
  Receipt Date: 20250924
  Transmission Date: 20251020
  Serious: No
  Sender: MICRO LABS
  Company Number: US-862174955-ML2025-03930

PATIENT
  Age: 49 Year
  Sex: Male

DRUGS (1)
  1. DORZOLAMIDE HYDROCHLORIDE AND TIMOLOL MALEATE OPHTHALMIC SOLUTION [Suspect]
     Active Substance: DORZOLAMIDE HYDROCHLORIDE\TIMOLOL MALEATE
     Indication: Glaucoma
     Dosage: DOSE: ONE DROP IN EACH EYE?FREQUENCY: TWO TIMES A DAY
     Route: 047
     Dates: start: 20250727

REACTIONS (3)
  - Intraocular pressure increased [Unknown]
  - Product dose omission issue [Unknown]
  - Product container issue [Unknown]

NARRATIVE: CASE EVENT DATE: 20250727
